FAERS Safety Report 5838616-8 (Version None)
Quarter: 2008Q3

REPORT INFORMATION
  Report Type: 
  Country: None (occurrence: None)
  Receive Date: 20080808
  Receipt Date: 20080605
  Transmission Date: 20090109
  Serious: No
  Sender: FDA-Public Use
  Company Number: A0731494A

PATIENT
  Sex: Female

DRUGS (1)
  1. ALTABAX [Suspect]
     Route: 061
     Dates: start: 20080603

REACTIONS (5)
  - INFLAMMATION [None]
  - PRURITUS [None]
  - RASH [None]
  - SKIN DISCOLOURATION [None]
  - SWELLING [None]
